FAERS Safety Report 18121259 (Version 1)
Quarter: 2020Q3

REPORT INFORMATION
  Report Type: Report from Study
  Country: US (occurrence: US)
  Receive Date: 20200806
  Receipt Date: 20200806
  Transmission Date: 20201103
  Serious: Yes (Other)
  Sender: FDA-Public Use
  Company Number: US-ACTELION-A-US2016-131664

PATIENT
  Age: 41 Year
  Sex: Female
  Weight: 99.77 kg

DRUGS (4)
  1. VERAPAMIL [Concomitant]
     Active Substance: VERAPAMIL HYDROCHLORIDE
  2. OPSUMIT [Suspect]
     Active Substance: MACITENTAN
     Indication: PULMONARY HYPERTENSION
     Dosage: 10 MG, QD
     Route: 048
     Dates: start: 20160211
  3. ADCIRCA [Concomitant]
     Active Substance: TADALAFIL
  4. XARELTO [Concomitant]
     Active Substance: RIVAROXABAN

REACTIONS (14)
  - Chronic sinusitis [Unknown]
  - Rhinorrhoea [Unknown]
  - Dizziness postural [Unknown]
  - Somnolence [Unknown]
  - Sneezing [Unknown]
  - Pulmonary embolism [Unknown]
  - Insomnia [Unknown]
  - Unevaluable event [Unknown]
  - Dizziness [Unknown]
  - Nasal congestion [Unknown]
  - Syncope [Unknown]
  - Influenza [Unknown]
  - Hypotension [Unknown]
  - Nasopharyngitis [Unknown]

NARRATIVE: CASE EVENT DATE: 20170225
